FAERS Safety Report 6850274-2 (Version None)
Quarter: 2010Q3

REPORT INFORMATION
  Report Type: 
  Country: None (occurrence: None)
  Receive Date: 20100716
  Receipt Date: 20071016
  Transmission Date: 20110219
  Serious: No
  Sender: FDA-Public Use
  Company Number: US-PFIZER INC-2007087141

PATIENT
  Sex: Female
  Weight: 97.7 kg

DRUGS (9)
  1. CHANTIX [Suspect]
     Indication: SMOKING CESSATION THERAPY
     Dates: start: 20071006
  2. SEROQUEL [Concomitant]
  3. CADUET [Concomitant]
     Indication: BLOOD CHOLESTEROL INCREASED
  4. CADUET [Concomitant]
     Indication: HYPERTENSION
  5. DOXEPIN HCL [Concomitant]
  6. LISINOPRIL [Concomitant]
     Indication: HYPERTENSION
  7. ATENOLOL [Concomitant]
     Indication: HYPERTENSION
  8. XANAX [Concomitant]
  9. GLIPIZIDE [Concomitant]

REACTIONS (3)
  - ABDOMINAL PAIN UPPER [None]
  - GASTRIC DISORDER [None]
  - NAUSEA [None]
